FAERS Safety Report 20993114 (Version 2)
Quarter: 2022Q3

REPORT INFORMATION
  Report Type: Report from Study
  Country: US (occurrence: US)
  Receive Date: 20220622
  Receipt Date: 20220727
  Transmission Date: 20221027
  Serious: Yes (Other)
  Sender: FDA-Public Use
  Company Number: US-BAYER-2022A074708

PATIENT
  Age: 82 Year
  Sex: Female

DRUGS (2)
  1. STIVARGA [Suspect]
     Active Substance: REGORAFENIB
     Indication: Colon cancer
     Dosage: 160 MG, QD WITH LOW FAT MEAL FOR 21 DAYS THEN 7 DAYS OFF DISCARD 7 WEEKS
     Route: 048
  2. STIVARGA [Suspect]
     Active Substance: REGORAFENIB
     Indication: Colorectal cancer
     Dosage: 80 MG, QD FOR 7 DAYS ON THEN 7 DAYS OFF
     Route: 048
     Dates: end: 20220707

REACTIONS (6)
  - Cytopenia [Not Recovered/Not Resolved]
  - Platelet count decreased [Not Recovered/Not Resolved]
  - Rash [Not Recovered/Not Resolved]
  - Urticaria [Not Recovered/Not Resolved]
  - Fatigue [None]
  - Product dose omission issue [None]

NARRATIVE: CASE EVENT DATE: 20220524
